FAERS Safety Report 7027703-7 (Version None)
Quarter: 2010Q4

REPORT INFORMATION
  Report Type: 
  Country: None (occurrence: None)
  Receive Date: 20101004
  Receipt Date: 20100924
  Transmission Date: 20110411
  Serious: Yes (Life-Threatening)
  Sender: FDA-Public Use
  Company Number: JP-AMGEN-QUU431029

PATIENT
  Sex: Male
  Weight: 73 kg

DRUGS (12)
  1. ENBREL [Suspect]
     Indication: RHEUMATOID ARTHRITIS
     Route: 058
     Dates: start: 20090427, end: 20100607
  2. RHEUMATREX [Suspect]
     Indication: RHEUMATOID ARTHRITIS
     Route: 048
     Dates: start: 20071001
  3. RHEUMATREX [Suspect]
     Route: 048
     Dates: start: 20071101
  4. RHEUMATREX [Suspect]
     Route: 048
     Dates: start: 20071201, end: 20080201
  5. ALFAROL [Concomitant]
     Indication: OSTEOPOROSIS
     Route: 048
     Dates: start: 20090601
  6. AZULFIDINE [Concomitant]
     Indication: RHEUMATOID ARTHRITIS
     Route: 048
     Dates: start: 20080912
  7. PYRIDOXAL PHOSPHATE [Concomitant]
     Route: 048
     Dates: start: 20090406, end: 20100103
  8. KETOPROFEN [Concomitant]
     Dosage: UNKNOWN
     Route: 061
     Dates: start: 20090427
  9. BAKTAR [Concomitant]
     Route: 048
     Dates: start: 20100104
  10. ONE-ALPHA [Concomitant]
     Route: 048
     Dates: start: 20080926, end: 20090531
  11. FOSAMAX [Concomitant]
     Indication: OSTEOPOROSIS
     Route: 048
     Dates: start: 20080702
  12. ISCOTIN [Concomitant]
     Route: 048
     Dates: start: 20090406, end: 20100103

REACTIONS (2)
  - PROSTATE CANCER [None]
  - URINARY TRACT INFECTION [None]
